FAERS Safety Report 21086362 (Version 1)
Quarter: 2022Q3

REPORT INFORMATION
  Report Type: Spontaneous
  Country: FR (occurrence: FR)
  Receive Date: 20220715
  Receipt Date: 20220715
  Transmission Date: 20221027
  Serious: Yes (Other)
  Sender: FDA-Public Use
  Company Number: FR-SUN PHARMACEUTICAL INDUSTRIES LTD-2022RR-344747

PATIENT
  Age: 38 Year
  Sex: Male

DRUGS (1)
  1. QUETIAPINE [Suspect]
     Active Substance: QUETIAPINE
     Indication: Mental disorder
     Dosage: UNK, CF COMMENTAIRE
     Route: 065
     Dates: start: 201501

REACTIONS (2)
  - Hepatic cytolysis [Not Recovered/Not Resolved]
  - Weight increased [Not Recovered/Not Resolved]

NARRATIVE: CASE EVENT DATE: 20210101
